FAERS Safety Report 8514735-2 (Version None)
Quarter: 2012Q3

REPORT INFORMATION
  Report Type: 
  Country: None (occurrence: None)
  Receive Date: 20120717
  Receipt Date: 20120712
  Transmission Date: 20120928
  Serious: Yes (Hospitalization)
  Sender: FDA-Public Use
  Company Number: US-BAYER-2012-070584

PATIENT
  Age: 31 Year
  Sex: Female
  Weight: 114.29 kg

DRUGS (8)
  1. ASCORBIC ACID [Concomitant]
     Dosage: 500 MG,
     Route: 048
  2. BIOTIN [Concomitant]
     Dosage: 500 MCG TAB
  3. PYRIDOXINE [Concomitant]
     Dosage: 25 MG, TABLET
  4. CALCIUM-CHOLECALCIFEROL D3 (CALTRATE-600 PLUS VITAMIN D3) [Concomitant]
     Dosage: 600 MG (1500 MG)-400 UNIT TAB
  5. CYANOCOBALAMIN [Concomitant]
     Dosage: 1000 MCG TABLET
  6. YASMIN [Suspect]
     Dosage: UNK
  7. MULTI-VITAMIN [Concomitant]
  8. FERROUS FUMERATE [Concomitant]
     Dosage: 200 MG

REACTIONS (2)
  - DEEP VEIN THROMBOSIS [None]
  - PULMONARY EMBOLISM [None]
